FAERS Safety Report 17815647 (Version 3)
Quarter: 2020Q3

REPORT INFORMATION
  Report Type: Spontaneous
  Country: ES (occurrence: ES)
  Receive Date: 20200522
  Receipt Date: 20200703
  Transmission Date: 20201102
  Serious: Yes (Other)
  Sender: FDA-Public Use
  Company Number: ES-ALEXION PHARMACEUTICALS INC.-A202006929

PATIENT
  Age: 22 Year
  Sex: Female

DRUGS (6)
  1. EVEROLIMUS. [Concomitant]
     Active Substance: EVEROLIMUS
     Indication: PRODUCT USED FOR UNKNOWN INDICATION
     Dosage: UNK
     Route: 065
     Dates: end: 20200519
  2. BELATACEPT [Concomitant]
     Active Substance: BELATACEPT
     Indication: PRODUCT USED FOR UNKNOWN INDICATION
     Dosage: UNK
     Route: 065
  3. SOLIRIS [Suspect]
     Active Substance: ECULIZUMAB
     Indication: THROMBOTIC MICROANGIOPATHY
     Dosage: 1200 MG , Q2W
     Route: 065
     Dates: start: 20200313, end: 20200513
  4. SOLIRIS [Suspect]
     Active Substance: ECULIZUMAB
     Indication: ATYPICAL HAEMOLYTIC URAEMIC SYNDROME
     Dosage: 1200 MG , Q2W
     Route: 065
     Dates: start: 20200313, end: 20200513
  5. TACROLIMUS. [Concomitant]
     Active Substance: TACROLIMUS
     Indication: PRODUCT USED FOR UNKNOWN INDICATION
     Dosage: UNK
     Route: 065
  6. SOLIRIS [Suspect]
     Active Substance: ECULIZUMAB
     Dosage: 900 MG, QW
     Route: 065
     Dates: start: 20200513, end: 20200609

REACTIONS (7)
  - Off label use [Recovered/Resolved]
  - Thrombotic microangiopathy [Recovered/Resolved]
  - Gene mutation identification test negative [Unknown]
  - Escherichia bacteraemia [Recovered/Resolved]
  - Urinary tract infection enterococcal [Unknown]
  - Dyslipidaemia [Unknown]
  - Total complement activity increased [Unknown]

NARRATIVE: CASE EVENT DATE: 20200313
